FAERS Safety Report 8232479-1 (Version None)
Quarter: 2012Q1

REPORT INFORMATION
  Report Type: 
  Country: None (occurrence: None)
  Receive Date: 20120323
  Receipt Date: 20120319
  Transmission Date: 20120608
  Serious: Yes (Other)
  Sender: FDA-Public Use
  Company Number: IL-PFIZER INC-2012063989

PATIENT
  Age: 36 Year
  Sex: Female

DRUGS (3)
  1. GEODON [Suspect]
     Dosage: 40 UNK, 2X/DAY
     Route: 048
  2. GEODON [Suspect]
     Indication: SCHIZOPHRENIA
     Dosage: 40 UNK, 1X/DAY
     Route: 048
  3. GEODON [Suspect]
     Dosage: 60 UNK, 2X/DAY
     Route: 048

REACTIONS (2)
  - AKATHISIA [None]
  - PANIC ATTACK [None]
